FAERS Safety Report 21043535 (Version 1)
Quarter: 2022Q3

REPORT INFORMATION
  Report Type: Other
  Country: US (occurrence: None)
  Receive Date: 20220705
  Receipt Date: 20220705
  Transmission Date: 20221027
  Serious: Yes (Other)
  Sender: FDA-Public Use
  Company Number: US-ROCHE-3127056

PATIENT
  Sex: Female

DRUGS (1)
  1. OCREVUS [Suspect]
     Active Substance: OCRELIZUMAB
     Indication: Multiple sclerosis
     Dosage: ONGOING YES
     Route: 065
     Dates: start: 20201117

REACTIONS (2)
  - Urinary tract infection [Recovered/Resolved]
  - Bladder spasm [Unknown]

NARRATIVE: CASE EVENT DATE: 20220101
